FAERS Safety Report 21907428 (Version 1)
Quarter: 2023Q1

REPORT INFORMATION
  Report Type: Spontaneous
  Country: DE (occurrence: DE)
  Receive Date: 20230125
  Receipt Date: 20230125
  Transmission Date: 20230418
  Serious: Yes (Hospitalization, Other)
  Sender: FDA-Public Use
  Company Number: None

PATIENT
  Age: 32 Year
  Sex: Female

DRUGS (4)
  1. ENANTONE MONATS-DEPOT [Suspect]
     Active Substance: LEUPROLIDE ACETATE
     Indication: Assisted reproductive technology
     Route: 065
  2. TRIPTORELIN ACETATE [Suspect]
     Active Substance: TRIPTORELIN ACETATE
     Indication: Assisted reproductive technology
     Dosage: 0.2 MILLIGRAM
     Route: 065
  3. GONAL-F [Suspect]
     Active Substance: FOLLITROPIN
     Indication: Assisted reproductive technology
     Dosage: 225 INTERNATIONAL UNIT
     Route: 065
  4. ORGALUTRAN [Suspect]
     Active Substance: GANIRELIX ACETATE
     Indication: Assisted reproductive technology
     Dosage: 0.25 MILLIGRAM
     Route: 065

REACTIONS (3)
  - Abdominal pain lower [Not Recovered/Not Resolved]
  - Ascites [Not Recovered/Not Resolved]
  - Ovarian hyperstimulation syndrome [Not Recovered/Not Resolved]

NARRATIVE: CASE EVENT DATE: 20221229
